FAERS Safety Report 9507077 (Version 1)
Quarter: 2013Q1

REPORT INFORMATION
  Report Type: Spontaneous
  Country: US (occurrence: None)
  Receive Date: 20130305
  Receipt Date: 20130305
  Transmission Date: 20140127
  Serious: Yes (Hospitalization, Other)
  Sender: FDA-Public Use
  Company Number: 163-21880-12050659

PATIENT
  Age: 76 Year
  Sex: Male
  Weight: 81.65 kg

DRUGS (20)
  1. REVLIMID (LENALIDOMIDE) (15 MILLIGRAM, CAPSULES) [Suspect]
     Indication: PLASMA CELL MYELOMA
     Dosage: 15 MG, 21 IN 28 D, PO
     Dates: start: 20110928, end: 20120414
  2. ISOSORBIDE MONONITRATE (ISOSORBIDE MONONITRATE) ITABLETS) [Concomitant]
  3. KLOR-CON (POTASSIUM CHLORIDE) (TABLETS) [Concomitant]
  4. SIMVASTATIN (SIMVASTATIN) (40 MILLIGRAMS TABLETS) [Concomitant]
  5. FLORANEX (LACTINEX) (TABLETS) [Concomitant]
  6. NORVASC (AMLODIPINE BESLILATE) (TABLETS) [Concomitant]
  7. ASPRIN (ACETYLSALICYLIC ACID) (ENTERIC-COATED TABLET) [Concomitant]
  8. BACITRACIN (BACITRACIN) (OINTMENT) [Concomitant]
  9. BISACODYL (BISACODYL) (ENTERIC-COATED TABLET) [Concomitant]
  10. CITRACAL + D (CITRACAL + D) (TABLETS) [Concomitant]
  11. VITAMIN D3 (COLECALCIFEROL) (CAPSULES) [Concomitant]
  12. PLAVIX (CLOPIDOGREL SULFATE) (TABLETS) [Concomitant]
  13. DEXAMETHASONE (DEXAMETHASONE) (TABLETS) [Concomitant]
  14. FLOMAX (TAMSULOSIN HYDROCHLORIDE) (CAPSULES) [Concomitant]
  15. VITAMIN B (VITAMIN B) (TABLETS) [Concomitant]
  16. ERGOCALICEROL (ERGOCALCIFEROL) (CAPSULES) [Concomitant]
  17. LANTUS SOLOSTAR (INSULIN GLARGAINE) (INJECTION) [Concomitant]
  18. HUMALOG (INSULIN LISPRO) (INJECTION) [Concomitant]
  19. GLUCERNA (GLUCERNA ^ABBOTT^ (LIQUID) [Concomitant]
  20. HYDROCODONE / ACETAMINOPHEN (REMEDEINE) (TABLETS) [Concomitant]

REACTIONS (6)
  - Cardiac failure congestive [None]
  - Fluid retention [None]
  - Blood glucose decreased [None]
  - Fall [None]
  - Anaemia [None]
  - Atrial fibrillation [None]
